FAERS Safety Report 4748700-8 (Version None)
Quarter: 2005Q3

REPORT INFORMATION
  Report Type: 
  Country: None (occurrence: None)
  Receive Date: 20050817
  Receipt Date: 20050805
  Transmission Date: 20060218
  Serious: Yes (Hospitalization)
  Sender: FDA-Public Use
  Company Number: 2005081862

PATIENT
  Sex: Female

DRUGS (2)
  1. VISTARIL [Suspect]
     Indication: ANAESTHESIA
     Dosage: INTRAMUSCULAR
     Route: 030
     Dates: start: 20050501
  2. HYDROXYZINE [Suspect]
     Indication: ILL-DEFINED DISORDER

REACTIONS (2)
  - INJECTION SITE NECROSIS [None]
  - SKIN GRAFT [None]
